FAERS Safety Report 16492819 (Version 1)
Quarter: 2019Q2

REPORT INFORMATION
  Report Type: Spontaneous
  Country: JP (occurrence: JP)
  Receive Date: 20190628
  Receipt Date: 20190628
  Transmission Date: 20190711
  Serious: Yes (Other)
  Sender: FDA-Public Use
  Company Number: JP-CELGENEUS-JPN-20190607727

PATIENT
  Age: 72 Year
  Sex: Female

DRUGS (3)
  1. ABRAXANE [Suspect]
     Active Substance: PACLITAXEL
     Indication: PANCREATIC CARCINOMA
     Dosage: 100 MILLIGRAM/SQ. METER
     Route: 041
  2. TS-1 [Concomitant]
     Active Substance: GIMERACIL\OTERACIL\TEGAFUR
     Indication: PANCREATIC CARCINOMA
     Route: 065
  3. GEMCITABINE [Concomitant]
     Active Substance: GEMCITABINE\GEMCITABINE HYDROCHLORIDE
     Indication: PANCREATIC CARCINOMA
     Dosage: 850 MILLIGRAM/SQ. METER
     Route: 041

REACTIONS (4)
  - Small intestinal haemorrhage [Unknown]
  - Neutrophil count decreased [Unknown]
  - Anaemia [Unknown]
  - Platelet count decreased [Unknown]
